FAERS Safety Report 4974662-4 (Version None)
Quarter: 2006Q2

REPORT INFORMATION
  Report Type: 
  Country: None (occurrence: None)
  Receive Date: 20060410
  Receipt Date: 20060330
  Transmission Date: 20061013
  Serious: Yes (Other)
  Sender: FDA-Public Use
  Company Number: 223614

PATIENT
  Age: 53 Year
  Sex: Male
  Weight: 78 kg

DRUGS (5)
  1. MABTHERA  (RITUXIMAB) CONC FOR SOLUTION FOR INFUSION [Suspect]
     Indication: B-CELL LYMPHOMA
     Dosage: 720 MG, INTRAVENOUS
     Route: 042
     Dates: start: 20060112, end: 20060202
  2. DOXORUBICIN HCL [Suspect]
     Indication: B-CELL LYMPHOMA
     Dosage: 95 MG, INTRAVENOUS
     Route: 042
     Dates: start: 20060112, end: 20060202
  3. CYCLOPHOSPHAMIDE [Suspect]
     Indication: B-CELL LYMPHOMA
     Dosage: 1450 MG, INTRAVENOUS
     Route: 042
     Dates: start: 20060112, end: 20060202
  4. VINCRISTINE [Suspect]
     Indication: B-CELL LYMPHOMA
     Dosage: 2 MG
     Dates: start: 20060112, end: 20060202
  5. PREDNISONE TAB [Suspect]
     Indication: B-CELL LYMPHOMA
     Dosage: 100 MG
     Dates: start: 20060112, end: 20060206

REACTIONS (1)
  - THROMBOSIS [None]
